FAERS Safety Report 8363338-1 (Version None)
Quarter: 2012Q2

REPORT INFORMATION
  Report Type: 
  Country: None (occurrence: None)
  Receive Date: 20120516
  Receipt Date: 20120510
  Transmission Date: 20120825
  Serious: Yes (Hospitalization)
  Sender: FDA-Public Use
  Company Number: US-TEVA-337777USA

PATIENT
  Sex: Female

DRUGS (10)
  1. IRINOTECAN HCL [Suspect]
     Indication: NEOPLASM
     Dosage: ON DAY 1 AND DAY
     Route: 042
     Dates: start: 20120320, end: 20120320
  2. HYZAAR [Concomitant]
     Indication: PRODUCT USED FOR UNKNOWN INDICATION
  3. FENTANYL-100 [Concomitant]
     Indication: PRODUCT USED FOR UNKNOWN INDICATION
     Dosage: 48 MICROGRAM;
  4. OXYCODONE HYDROCHLORIDE [Concomitant]
     Indication: PRODUCT USED FOR UNKNOWN INDICATION
  5. PANTOPRAZOLE SODIUM [Concomitant]
     Indication: PRODUCT USED FOR UNKNOWN INDICATION
     Dosage: 40 MILLIGRAM;
  6. LEUCOVORIN CALCIUM [Suspect]
     Indication: NEOPLASM
     Dosage: ON DAY 1 AND DAY 15
     Route: 042
     Dates: start: 20120320, end: 20120320
  7. DICYCLOMINE [Concomitant]
     Indication: PRODUCT USED FOR UNKNOWN INDICATION
     Dosage: 80 MILLIGRAM;
  8. FLUOROURACIL [Suspect]
     Indication: NEOPLASM
     Dosage: OVER DAYS 1-3 AND 15-17 OF EACH 28 DAY CYCLE
     Route: 042
     Dates: start: 20120320, end: 20120321
  9. INVESTIGATIONAL DRUG (ABT-888 VELIPARIB) [Suspect]
     Indication: NEOPLASM
  10. ESTRADIOL [Concomitant]
     Indication: PRODUCT USED FOR UNKNOWN INDICATION
     Dosage: .0071 MILLIGRAM;

REACTIONS (1)
  - CHOLANGITIS [None]
